FAERS Safety Report 7713724-5 (Version None)
Quarter: 2011Q3

REPORT INFORMATION
  Report Type: 
  Country: None (occurrence: None)
  Receive Date: 20110826
  Receipt Date: 20110815
  Transmission Date: 20111222
  Serious: Yes (Hospitalization)
  Sender: FDA-Public Use
  Company Number: US-MYLANLABS-2011S1017323

PATIENT
  Age: 65 Year
  Sex: Female

DRUGS (6)
  1. FUROSEMIDE [Concomitant]
     Indication: HYPERTENSION
     Route: 065
  2. LISINOPRIL [Concomitant]
     Indication: HYPERTENSION
     Dosage: 40MG DAILY
     Route: 065
  3. CLONIDINE [Suspect]
     Indication: HYPERTENSION
     Route: 065
  4. METOPROLOL [Suspect]
     Indication: HYPERTENSION
     Route: 065
  5. AMLODIPINE [Concomitant]
     Indication: HYPERTENSION
     Dosage: 10MG DAILY
     Route: 065
  6. HYDRALAZINE HCL [Concomitant]
     Indication: HYPERTENSION
     Route: 065

REACTIONS (3)
  - SINUS BRADYCARDIA [None]
  - DYSARTHRIA [None]
  - VISION BLURRED [None]
